FAERS Safety Report 7888713-0 (Version None)
Quarter: 2011Q4

REPORT INFORMATION
  Report Type: 
  Country: None (occurrence: None)
  Receive Date: 20111103
  Receipt Date: 20111024
  Transmission Date: 20120403
  Serious: Yes (Other)
  Sender: FDA-Public Use
  Company Number: IT-ROCHE-1007637

PATIENT

DRUGS (4)
  1. FLUOROURACIL [Suspect]
     Indication: COLORECTAL CANCER METASTATIC
  2. IRINOTECAN HYDROCHLORIDE [Suspect]
     Indication: COLORECTAL CANCER METASTATIC
  3. LEUCOVORIN CALCIUM [Suspect]
     Indication: COLORECTAL CANCER METASTATIC
  4. AVASTIN [Suspect]
     Indication: COLORECTAL CANCER METASTATIC

REACTIONS (15)
  - FEBRILE NEUTROPENIA [None]
  - DIARRHOEA [None]
  - THROMBOCYTOPENIA [None]
  - STOMATITIS [None]
  - NEUTROPENIA [None]
  - HYPERTENSION [None]
  - EPISTAXIS [None]
  - ARTERIAL THROMBOSIS [None]
  - CHOLINERGIC SYNDROME [None]
  - ANAEMIA [None]
  - ALOPECIA [None]
  - NAUSEA [None]
  - FATIGUE [None]
  - VOMITING [None]
  - PROTEINURIA [None]
